FAERS Safety Report 24255908 (Version 1)
Quarter: 2024Q3

REPORT INFORMATION
  Report Type: Spontaneous
  Country: US (occurrence: None)
  Receive Date: 20240827
  Receipt Date: 20240827
  Transmission Date: 20241017
  Serious: Yes (Hospitalization)
  Sender: Public
  Company Number: None

PATIENT
  Age: 18 Year
  Sex: Female

DRUGS (2)
  1. NUWIQ [Suspect]
     Active Substance: ANTIHEMOPHILIC FACTOR, HUMAN RECOMBINANT
     Indication: Factor VIII deficiency
     Dosage: 3000 UNITS PRN IV
     Route: 042
     Dates: start: 201810
  2. HEMUBRA SDV [Concomitant]

REACTIONS (2)
  - Road traffic accident [None]
  - Skin haemorrhage [None]

NARRATIVE: CASE EVENT DATE: 20240824
